FAERS Safety Report 4458141-9 (Version None)
Quarter: 2004Q3

REPORT INFORMATION
  Report Type: 
  Country: None (occurrence: None)
  Receive Date: 20040924
  Receipt Date: 20040913
  Transmission Date: 20050211
  Serious: Yes (Hospitalization)
  Sender: FDA-Public Use
  Company Number: 379655

PATIENT
  Age: 76 Year
  Sex: Male

DRUGS (6)
  1. DILATREND [Suspect]
     Dosage: 50MG PER DAY
     Route: 048
     Dates: start: 20040502, end: 20040616
  2. TARDYFERON [Suspect]
     Route: 048
     Dates: start: 20040502, end: 20040616
  3. NITRODERM [Suspect]
     Route: 062
     Dates: start: 20040502, end: 20040616
  4. SINTROM [Concomitant]
  5. TOREM [Concomitant]
  6. XATRAL [Concomitant]

REACTIONS (7)
  - DYSPNOEA [None]
  - ORTHOPNOEA [None]
  - PURPURA [None]
  - RALES [None]
  - RASH MACULAR [None]
  - RASH PRURITIC [None]
  - TOXIC SKIN ERUPTION [None]
